FAERS Safety Report 14799721 (Version 1)
Quarter: 2018Q2

REPORT INFORMATION
  Report Type: Spontaneous
  Country: US (occurrence: US)
  Receive Date: 20180424
  Receipt Date: 20180424
  Transmission Date: 20180711
  Serious: No
  Sender: FDA-Public Use
  Company Number: US-SHIRE-US201815357

PATIENT
  Sex: Female

DRUGS (1)
  1. XIIDRA [Suspect]
     Active Substance: LIFITEGRAST
     Indication: DRY EYE
     Dosage: UNK
     Route: 047
     Dates: start: 201712, end: 201801

REACTIONS (5)
  - Instillation site irritation [Unknown]
  - Dysgeusia [Unknown]
  - Instillation site pruritus [Unknown]
  - Instillation site pain [Unknown]
  - Drug ineffective [Unknown]
